FAERS Safety Report 17220773 (Version 3)
Quarter: 2020Q1

REPORT INFORMATION
  Report Type: Report from Study
  Country: KR (occurrence: KR)
  Receive Date: 20191231
  Receipt Date: 20200302
  Transmission Date: 20200409
  Serious: Yes (Hospitalization)
  Sender: FDA-Public Use
  Company Number: KR-ELI_LILLY_AND_COMPANY-KR201912013741

PATIENT
  Age: 71 Year
  Sex: Male
  Weight: 54 kg

DRUGS (3)
  1. RAMUCIRUMAB [Suspect]
     Active Substance: RAMUCIRUMAB
     Indication: GASTRIC CANCER
     Dosage: 8 MG, CYCLICAL (Q2W)
     Route: 042
     Dates: start: 20181214
  2. PACLITAXEL. [Concomitant]
     Active Substance: PACLITAXEL
     Indication: GASTRIC CANCER
     Dosage: 80 MG, CYCLICAL (Q2W)
     Route: 042
     Dates: start: 20181214
  3. PACLITAXEL. [Concomitant]
     Active Substance: PACLITAXEL
     Dosage: 80 MG, CYCLICAL (Q2W)
     Route: 042
     Dates: start: 20181227

REACTIONS (1)
  - Pulmonary haemorrhage [Recovered/Resolved]

NARRATIVE: CASE EVENT DATE: 20191112
